FAERS Safety Report 10971975 (Version 3)
Quarter: 2015Q3

REPORT INFORMATION
  Report Type: Spontaneous
  Country: AU (occurrence: AU)
  Receive Date: 20150331
  Receipt Date: 20150716
  Transmission Date: 20151125
  Serious: Yes (Hospitalization)
  Sender: FDA-Public Use
  Company Number: AU-009507513-1503AUS013725

PATIENT

DRUGS (9)
  1. SIMVASTATIN. [Suspect]
     Active Substance: SIMVASTATIN
     Route: 048
  2. ASPIRIN. [Suspect]
     Active Substance: ASPIRIN
  3. BICALUTAMIDE. [Suspect]
     Active Substance: BICALUTAMIDE
  4. CYPROTERONE ACETATE [Suspect]
     Active Substance: CYPROTERONE ACETATE
  5. ACETAMINOPHEN AND CODEINE [Suspect]
     Active Substance: ACETAMINOPHEN\CODEINE PHOSPHATE
  6. CLOPIDOGREL [Suspect]
     Active Substance: CLOPIDOGREL BISULFATE
  7. IRBESARTAN. [Suspect]
     Active Substance: IRBESARTAN
  8. EZETIMIBE. [Suspect]
     Active Substance: EZETIMIBE
     Route: 048
  9. AMOXICILLIN. [Suspect]
     Active Substance: AMOXICILLIN

REACTIONS (1)
  - Drug-induced liver injury [Unknown]
